FAERS Safety Report 5335456-3 (Version None)
Quarter: 2007Q2

REPORT INFORMATION
  Report Type: 
  Country: None (occurrence: None)
  Receive Date: 20070525
  Receipt Date: 20070516
  Transmission Date: 20071010
  Serious: Yes (Other)
  Sender: FDA-Public Use
  Company Number: FR-PFIZER INC-2007040437

PATIENT
  Sex: Female

DRUGS (2)
  1. CHAMPIX [Suspect]
  2. PREVISCAN [Concomitant]

REACTIONS (3)
  - CHEST PAIN [None]
  - HAEMATOMA [None]
  - PROTHROMBIN TIME ABNORMAL [None]
